FAERS Safety Report 10272597 (Version 1)
Quarter: 2014Q3

REPORT INFORMATION
  Report Type: Spontaneous
  Country: US (occurrence: US)
  Receive Date: 20140702
  Receipt Date: 20140702
  Transmission Date: 20150326
  Serious: No
  Sender: FDA-Public Use
  Company Number: US-TEVA-491960USA

PATIENT
  Age: 20 Year
  Sex: Female
  Weight: 59.02 kg

DRUGS (1)
  1. TAKE ACTION [Suspect]
     Active Substance: LEVONORGESTREL
     Indication: POST COITAL CONTRACEPTION
     Dosage: 1.5 MILLIGRAM DAILY;
     Route: 048
     Dates: start: 20140627, end: 20140627

REACTIONS (2)
  - Back pain [Not Recovered/Not Resolved]
  - Pelvic pain [Not Recovered/Not Resolved]

NARRATIVE: CASE EVENT DATE: 20140627
